FAERS Safety Report 9201780 (Version 5)
Quarter: 2013Q3

REPORT INFORMATION
  Report Type: Report from Study
  Country: US (occurrence: US)
  Receive Date: 20130401
  Receipt Date: 20130905
  Transmission Date: 20140515
  Serious: Yes (Other)
  Sender: FDA-Public Use
  Company Number: US-JNJFOC-20130317270

PATIENT
  Sex: 0

DRUGS (2)
  1. USTEKINUMAB [Suspect]
     Indication: FOETAL EXPOSURE DURING PREGNANCY
  2. TACLONEX [Suspect]
     Indication: PRODUCT USED FOR UNKNOWN INDICATION

REACTIONS (1)
  - Neonatal aspiration [Unknown]
